FAERS Safety Report 4437940-3 (Version None)
Quarter: 2004Q3

REPORT INFORMATION
  Report Type: 
  Country: None (occurrence: None)
  Receive Date: 20040831
  Receipt Date: 20040819
  Transmission Date: 20050211
  Serious: Yes (Other)
  Sender: FDA-Public Use
  Company Number: US-GLAXOSMITHKLINE-A0523739A

PATIENT
  Age: 10 Year
  Sex: Female

DRUGS (1)
  1. PAXIL [Suspect]
     Indication: MIGRAINE
     Route: 048
     Dates: start: 20020301

REACTIONS (4)
  - AGGRESSION [None]
  - AGITATION [None]
  - HALLUCINATION, AUDITORY [None]
  - HALLUCINATION, VISUAL [None]
